FAERS Safety Report 5083250-3 (Version None)
Quarter: 2006Q3

REPORT INFORMATION
  Report Type: 
  Country: None (occurrence: None)
  Receive Date: 20060818
  Receipt Date: 20051019
  Transmission Date: 20061208
  Serious: Yes (Hospitalization)
  Sender: FDA-Public Use
  Company Number: FR-BRISTOL-MYERS SQUIBB COMPANY-13155825

PATIENT
  Age: 39 Year
  Sex: Female

DRUGS (3)
  1. ABILIFY [Suspect]
     Indication: PSYCHOTIC DISORDER
     Route: 048
     Dates: start: 20050601
  2. AMISULPRIDE [Suspect]
     Indication: PSYCHOTIC DISORDER
     Dosage: INITIAL DOSE 200 MG
     Route: 048
     Dates: start: 20030101
  3. PRAZEPAM [Suspect]
     Indication: ANXIETY
     Dosage: INITIAL DOSE 10 MG, DAILY DOSE RANGE 15 MG TO 20 MG DAILY.
     Route: 048
     Dates: start: 20030101

REACTIONS (5)
  - AGITATION [None]
  - CAESAREAN SECTION [None]
  - HYPERTENSION [None]
  - NORMAL NEWBORN [None]
  - PREGNANCY [None]
